FAERS Safety Report 5885071-8 (Version None)
Quarter: 2008Q3

REPORT INFORMATION
  Report Type: 
  Country: None (occurrence: None)
  Receive Date: 20080915
  Receipt Date: 20080915
  Transmission Date: 20090109
  Serious: Yes (Hospitalization)
  Sender: FDA-Public Use
  Company Number: None

PATIENT
  Age: 57 Year
  Sex: Female
  Weight: 66.9 kg

DRUGS (1)
  1. ZIPRASIDONE HCL [Suspect]
     Indication: SCHIZOPHRENIA, PARANOID TYPE
     Dosage: 40 MG BID PO
     Route: 048
     Dates: start: 20070808, end: 20080903

REACTIONS (3)
  - FLIGHT OF IDEAS [None]
  - RESTLESSNESS [None]
  - TACHYCARDIA [None]
